FAERS Safety Report 9276133 (Version 1)
Quarter: 2013Q2

REPORT INFORMATION
  Report Type: Spontaneous
  Country: ES (occurrence: ES)
  Receive Date: 20130507
  Receipt Date: 20130507
  Transmission Date: 20140414
  Serious: Yes (Death)
  Sender: FDA-Public Use
  Company Number: ES-JNJFOC-20130503289

PATIENT
  Age: 75 Year
  Sex: Female

DRUGS (4)
  1. XARELTO [Suspect]
     Indication: CEREBROVASCULAR ACCIDENT PROPHYLAXIS
     Dosage: 20 MG DAILY DOSE
     Route: 048
     Dates: start: 201210
  2. XARELTO [Suspect]
     Indication: ATRIAL FIBRILLATION
     Dosage: 20 MG DAILY DOSE
     Route: 048
     Dates: start: 201210
  3. SINTROM [Concomitant]
     Indication: ARTERIAL DISORDER
     Route: 065
  4. SINTROM [Concomitant]
     Indication: ATRIAL FIBRILLATION
     Route: 065

REACTIONS (2)
  - Ischaemic stroke [Fatal]
  - Drug ineffective [Fatal]
